FAERS Safety Report 9381985 (Version 3)
Quarter: 2014Q1

REPORT INFORMATION
  Report Type: Report from Study
  Country: FR (occurrence: FR)
  Receive Date: 20130703
  Receipt Date: 20140214
  Transmission Date: 20141002
  Serious: Yes (Hospitalization, Other)
  Sender: FDA-Public Use
  Company Number: FR-009507513-1306FRA014100

PATIENT
  Age: 47 Year
  Sex: Male
  Weight: 121 kg

DRUGS (23)
  1. BOCEPREVIR [Suspect]
     Indication: HEPATITIS C
     Dosage: 800 MG, TID
     Route: 048
     Dates: start: 20130311, end: 20130411
  2. PEGASYS [Suspect]
     Indication: HEPATITIS C
     Dosage: 180 MICROGRAM, QW
     Route: 065
     Dates: start: 20130210, end: 20130411
  3. PEGASYS [Suspect]
     Indication: HEPATITIS C
  4. COPEGUS [Suspect]
     Indication: HEPATITIS C
     Dosage: 600 MG, BID
     Route: 065
     Dates: start: 20130211, end: 20130407
  5. COPEGUS [Suspect]
     Dosage: 500 MG, BID
     Route: 065
     Dates: start: 20130408, end: 20130411
  6. SOLU-MEDROL [Concomitant]
     Indication: LIVER TRANSPLANT
     Dosage: 1 MG, UNK
     Dates: start: 20130419
  7. PROGRAF [Concomitant]
     Indication: LIVER TRANSPLANT
     Dosage: 1.5 MG, QD
     Dates: start: 20130412
  8. AVLOCARDYL [Concomitant]
  9. ALDACTONE TABLETS [Concomitant]
  10. LASILIX [Concomitant]
     Dosage: 40 MG, QD
  11. AOTAL [Concomitant]
  12. LOXEN [Concomitant]
     Indication: HYPERTENSION
     Dosage: 50 MG, QD
     Dates: start: 20130412
  13. INSULIN [Concomitant]
     Indication: DIABETES MELLITUS
     Dosage: 3 DF, QD
     Dates: start: 20130412
  14. ZARZIO [Concomitant]
     Indication: PANCYTOPENIA
     Dosage: UNK
     Dates: start: 20130412
  15. CERTICAN [Concomitant]
     Indication: LIVER TRANSPLANT
     Dosage: 0.5 MG, BID
     Dates: start: 20130412
  16. SOLUPRED [Concomitant]
     Indication: LIVER TRANSPLANT
     Dosage: 30 MG, QD
     Dates: start: 20130412
  17. KARDEGIC [Concomitant]
     Indication: HYPERTENSION
     Dosage: 160 MG, QD
     Dates: start: 20130412
  18. INEXIUM [Concomitant]
     Indication: PROPHYLAXIS
     Dosage: 40 MG, QD
     Dates: start: 20130412
  19. AMLODIPINE [Concomitant]
     Indication: HYPERTENSION
     Dosage: 10 MG, QD
     Dates: start: 201307
  20. CONTRAMAL [Concomitant]
     Indication: PAIN
     Dosage: 50 MG, UNK
  21. LANTUS [Concomitant]
     Indication: DIABETES MELLITUS
     Dosage: 12 IU, QD
     Dates: start: 20130412
  22. URSOLVAN [Concomitant]
     Dosage: 200 MG, 5 TIMES PER DAY
  23. DOLIPRANE [Concomitant]
     Indication: PAIN
     Dosage: 1 G, UNK
     Dates: start: 20130712

REACTIONS (6)
  - Transplant rejection [Recovered/Resolved]
  - Hepatic function abnormal [Recovered/Resolved]
  - Surgery [Recovered/Resolved]
  - Biliary tract operation [Recovered/Resolved]
  - Hepatic artery stenosis [Recovered/Resolved]
  - Angioplasty [Recovered/Resolved]
